FAERS Safety Report 7007118-8 (Version None)
Quarter: 2010Q3

REPORT INFORMATION
  Report Type: 
  Country: None (occurrence: None)
  Receive Date: 20100913
  Receipt Date: 20100831
  Transmission Date: 20110219
  Serious: No
  Sender: FDA-Public Use
  Company Number: B0673351A

PATIENT
  Age: 55 Year
  Sex: Female

DRUGS (4)
  1. BUPROPION HCL [Suspect]
     Indication: DEPRESSION
     Dosage: 300MG
  2. VENLAFAXINE HCL [Suspect]
     Indication: DEPRESSION
  3. MIRTAZAPINE [Concomitant]
  4. OPIPRAMOL [Concomitant]

REACTIONS (3)
  - ANTIDEPRESSANT DRUG LEVEL ABOVE THERAPEUTIC [None]
  - DRUG INTERACTION [None]
  - TENSION [None]
